FAERS Safety Report 7512364-0 (Version None)
Quarter: 2011Q2

REPORT INFORMATION
  Report Type: 
  Country: None (occurrence: None)
  Receive Date: 20110531
  Receipt Date: 20110524
  Transmission Date: 20111010
  Serious: Yes (Other)
  Sender: FDA-Public Use
  Company Number: CH-SANOFI-AVENTIS-2011SA032569

PATIENT
  Age: 41 Year
  Sex: Female

DRUGS (2)
  1. SIMILASAN [Concomitant]
     Dosage: DRUG NAME PROVIDED AS SIMILASAN EYE DROPS NO. 2
     Dates: start: 20110413, end: 20110413
  2. FEXOFENADINE HCL [Suspect]
     Route: 048

REACTIONS (4)
  - SENSATION OF HEAVINESS [None]
  - ANGIOEDEMA [None]
  - DRY MOUTH [None]
  - ANGINA PECTORIS [None]
